FAERS Safety Report 17405083 (Version 2)
Quarter: 2020Q4

REPORT INFORMATION
  Report Type: Spontaneous
  Country: FR (occurrence: FR)
  Receive Date: 20200212
  Receipt Date: 20201003
  Transmission Date: 20210113
  Serious: Yes (Hospitalization)
  Sender: FDA-Public Use
  Company Number: FR-SUN PHARMACEUTICAL INDUSTRIES LTD-2020RR-236267

PATIENT
  Age: 37 Year
  Sex: Female
  Weight: 57 kg

DRUGS (12)
  1. CHOLECALCIFEROL [Concomitant]
     Active Substance: CHOLECALCIFEROL
     Indication: VITAMIN SUPPLEMENTATION
     Dosage: 2 GRAM, DAILY
     Route: 048
     Dates: start: 20191212, end: 20200103
  2. CHLORURE DE POTASSIUM [Concomitant]
     Active Substance: POTASSIUM CHLORIDE
     Indication: MINERAL SUPPLEMENTATION
     Dosage: 4 GRAM, DAILY
     Route: 048
     Dates: start: 20191126
  3. CORTANCYL [Concomitant]
     Active Substance: PREDNISONE
     Indication: BRAIN OEDEMA
     Dosage: 1 DOSAGE FORM, DAILY
     Route: 048
     Dates: start: 20191109
  4. ETHAMBUTOL [Concomitant]
     Active Substance: ETHAMBUTOL HYDROCHLORIDE
     Indication: MYCOBACTERIUM AVIUM COMPLEX INFECTION
     Dosage: 1000 MILLIGRAM, DAILY
     Route: 048
     Dates: start: 20191204
  5. REPAGLINIDE ARROW 0,5 MG, COMPRIME [Concomitant]
     Indication: TYPE 2 DIABETES MELLITUS
     Dosage: 1 GRAM, DAILY
     Route: 048
     Dates: start: 20191219
  6. CALCIUM (CARBONATE DE) [Concomitant]
     Active Substance: CALCIUM CARBONATE
     Indication: MINERAL SUPPLEMENTATION
     Dosage: 10 MILLIGRAM, UNK
     Route: 048
     Dates: start: 20191211
  7. BACTRIM [Concomitant]
     Active Substance: SULFAMETHOXAZOLE\TRIMETHOPRIM
     Indication: MYCOBACTERIUM AVIUM COMPLEX INFECTION
     Dosage: 1200 MILLIGRAM, DAILY
     Route: 048
     Dates: start: 20191204, end: 20200103
  8. CLARITHROMYCINE [Suspect]
     Active Substance: CLARITHROMYCIN
     Indication: MYCOBACTERIUM AVIUM COMPLEX INFECTION
     Dosage: 1000 MILLIGRAM, DAILY
     Route: 048
     Dates: start: 20191212
  9. ZOLPIDEM [Concomitant]
     Active Substance: ZOLPIDEM TARTRATE
     Indication: INSOMNIA
     Dosage: 2 MILLIGRAM, DAILY
     Route: 048
     Dates: start: 20191220, end: 20200103
  10. ETHAMBUTOL [Concomitant]
     Active Substance: ETHAMBUTOL HYDROCHLORIDE
     Indication: MYCOBACTERIUM AVIUM COMPLEX INFECTION
  11. ANSATIPINE 150 MG, GELULE [Interacting]
     Active Substance: RIFABUTIN
     Indication: MYCOBACTERIUM AVIUM COMPLEX INFECTION
     Dosage: 800 INTERNATIONAL UNIT, DAILY
     Route: 048
  12. PARACETAMOL [Concomitant]
     Active Substance: ACETAMINOPHEN
     Indication: MYCOBACTERIUM AVIUM COMPLEX INFECTION
     Dosage: 60 MILLIGRAM, DAILY
     Route: 048
     Dates: start: 20191224

REACTIONS (1)
  - Uveitis [Recovering/Resolving]

NARRATIVE: CASE EVENT DATE: 20200103
